FAERS Safety Report 7958098-X (Version None)
Quarter: 2011Q4

REPORT INFORMATION
  Report Type: 
  Country: None (occurrence: None)
  Receive Date: 20111205
  Receipt Date: 20111122
  Transmission Date: 20120403
  Serious: Yes (Hospitalization)
  Sender: FDA-Public Use
  Company Number: JP-MYLANLABS-2011S1024297

PATIENT
  Age: 75 Year
  Sex: Male
  Weight: 41.4 kg

DRUGS (2)
  1. TSU-68 [Suspect]
     Indication: HEPATIC NEOPLASM MALIGNANT
  2. EPIRUBICIN [Suspect]
     Indication: HEPATIC NEOPLASM MALIGNANT
     Route: 013
     Dates: end: 20110216

REACTIONS (1)
  - LIVER ABSCESS [None]
